FAERS Safety Report 12328003 (Version 1)
Quarter: 2016Q2

REPORT INFORMATION
  Report Type: Spontaneous
  Country: US (occurrence: US)
  Receive Date: 20160503
  Receipt Date: 20160503
  Transmission Date: 20160815
  Serious: No
  Sender: FDA-Public Use
  Company Number: US-009507513-1604USA008300

PATIENT
  Sex: Female

DRUGS (1)
  1. NEXPLANON [Suspect]
     Active Substance: ETONOGESTREL
     Indication: CONTRACEPTION
     Dosage: STRENGTH 68 MG, 1 ROD PER 3 YERAS
     Route: 059

REACTIONS (2)
  - Weight increased [Unknown]
  - Complication associated with device [Unknown]

NARRATIVE: CASE EVENT DATE: 201604
